FAERS Safety Report 24294149 (Version 1)
Quarter: 2024Q3

REPORT INFORMATION
  Report Type: Spontaneous
  Country: US (occurrence: US)
  Receive Date: 20240906
  Receipt Date: 20240906
  Transmission Date: 20241016
  Serious: No
  Sender: DOMPE FARMACEUTICI
  Company Number: US-FARMAPROD-202308-202405-1788

PATIENT
  Sex: Female
  Weight: 60.92 kg

DRUGS (12)
  1. OXERVATE [Suspect]
     Active Substance: CENEGERMIN-BKBJ
     Indication: Neurotrophic keratopathy
     Route: 047
     Dates: start: 20240318
  2. OXERVATE [Suspect]
     Active Substance: CENEGERMIN-BKBJ
  3. OXERVATE [Suspect]
     Active Substance: CENEGERMIN-BKBJ
  4. OXERVATE [Suspect]
     Active Substance: CENEGERMIN-BKBJ
     Dates: start: 20240605
  5. METHOTREXATE [Concomitant]
     Active Substance: METHOTREXATE
  6. PREDNISOLONE ACETATE [Concomitant]
     Active Substance: PREDNISOLONE ACETATE
  7. METHOCARBAMOL [Concomitant]
     Active Substance: METHOCARBAMOL
  8. PREDNISONE [Concomitant]
     Active Substance: PREDNISONE
  9. METHYLPHENIDATE HYDROCHLORIDE [Concomitant]
     Active Substance: METHYLPHENIDATE HYDROCHLORIDE
  10. HYDROXYCHLOROQUINE SULFATE [Concomitant]
     Active Substance: HYDROXYCHLOROQUINE SULFATE
  11. XIIDRA [Concomitant]
     Active Substance: LIFITEGRAST
  12. IBU [Concomitant]
     Active Substance: IBUPROFEN

REACTIONS (1)
  - Therapy interrupted [Not Recovered/Not Resolved]
